FAERS Safety Report 8470627-9 (Version None)
Quarter: 2012Q2

REPORT INFORMATION
  Report Type: 
  Country: None (occurrence: None)
  Receive Date: 20120627
  Receipt Date: 20120622
  Transmission Date: 20120825
  Serious: Yes (Disabling)
  Sender: FDA-Public Use
  Company Number: PHHY2012PT053563

PATIENT
  Age: 37 Year
  Sex: Male

DRUGS (1)
  1. TEGRETOL-XR [Suspect]
     Indication: EPILEPSY
     Dates: start: 20110101

REACTIONS (1)
  - BLINDNESS [None]
